FAERS Safety Report 6187057-5 (Version None)
Quarter: 2009Q2

REPORT INFORMATION
  Report Type: 
  Country: None (occurrence: None)
  Receive Date: 20090512
  Receipt Date: 20090430
  Transmission Date: 20091009
  Serious: Yes (Death, Life-Threatening, Hospitalization, Disabling)
  Sender: FDA-Public Use
  Company Number: IN-CELGENEUS-THAIN200700416

PATIENT
  Sex: Male

DRUGS (1)
  1. THALIDOMIDE [Suspect]
     Indication: MULTIPLE MYELOMA
     Route: 048
     Dates: start: 20070514

REACTIONS (4)
  - ASCITES [None]
  - DISEASE PROGRESSION [None]
  - LOBAR PNEUMONIA [None]
  - RENAL FAILURE CHRONIC [None]
